FAERS Safety Report 21754067 (Version 1)
Quarter: 2022Q4

REPORT INFORMATION
  Report Type: Spontaneous
  Country: US (occurrence: US)
  Receive Date: 20221220
  Receipt Date: 20221220
  Transmission Date: 20230112
  Serious: No
  Sender: FDA-Public Use
  Company Number: US-BIOGEN-2020BI00834641

PATIENT
  Sex: Female

DRUGS (2)
  1. TYSABRI [Suspect]
     Active Substance: NATALIZUMAB
     Indication: Multiple sclerosis
     Dosage: TYSABRI 300 MG/15 ML/100 ML IV GRAVITY OVER 1.25 H?DATE OF SCHEDULED WITH NURSE WAS 28-NOV-2022
     Route: 050
     Dates: start: 20190312
  2. NEXIUM [Concomitant]
     Active Substance: ESOMEPRAZOLE MAGNESIUM
     Indication: Gastrooesophageal reflux disease
     Route: 050

REACTIONS (5)
  - Prescribed underdose [Not Recovered/Not Resolved]
  - Limb discomfort [Unknown]
  - Visual impairment [Unknown]
  - Diplopia [Unknown]
  - Vision blurred [Unknown]
